FAERS Safety Report 4457864-5 (Version None)
Quarter: 2004Q3

REPORT INFORMATION
  Report Type: 
  Country: None (occurrence: None)
  Receive Date: 20040924
  Receipt Date: 20040915
  Transmission Date: 20050211
  Serious: Yes (Hospitalization, Other)
  Sender: FDA-Public Use
  Company Number: US-JNJFOC-20040603603

PATIENT
  Sex: Female
  Weight: 98 kg

DRUGS (16)
  1. REMICADE [Suspect]
     Route: 042
  2. REMICADE [Suspect]
     Route: 042
  3. REMICADE [Suspect]
     Route: 042
  4. REMICADE [Suspect]
     Route: 042
  5. REMICADE [Suspect]
     Route: 042
  6. REMICADE [Suspect]
     Route: 042
  7. REMICADE [Suspect]
     Route: 042
  8. REMICADE [Suspect]
     Route: 042
  9. REMICADE [Suspect]
     Route: 042
  10. REMICADE [Suspect]
     Route: 042
  11. REMICADE [Suspect]
     Route: 042
  12. REMICADE [Suspect]
     Route: 042
  13. REMICADE [Suspect]
     Indication: RHEUMATOID ARTHRITIS
     Route: 042
  14. METHOTREXATE [Concomitant]
     Indication: RHEUMATOID ARTHRITIS
     Route: 049
  15. PREDNISONE [Concomitant]
     Indication: RHEUMATOID ARTHRITIS
  16. MEDROL [Concomitant]
     Dosage: DAILY IN THE AM
     Route: 049

REACTIONS (10)
  - ATRIAL FIBRILLATION [None]
  - CHEST PAIN [None]
  - COUGH [None]
  - HEADACHE [None]
  - LUPUS-LIKE SYNDROME [None]
  - MALAISE [None]
  - PERICARDITIS [None]
  - PLEURISY [None]
  - PRURITUS [None]
  - THERAPEUTIC RESPONSE DECREASED [None]
